FAERS Safety Report 6229021-3 (Version None)
Quarter: 2009Q2

REPORT INFORMATION
  Report Type: 
  Country: None (occurrence: None)
  Receive Date: 20090615
  Receipt Date: 20090604
  Transmission Date: 20091009
  Serious: Yes (Hospitalization)
  Sender: FDA-Public Use
  Company Number: US-BIOGENIDEC-2005BI016423

PATIENT
  Age: 35 Year
  Sex: Female
  Weight: 81 kg

DRUGS (2)
  1. AVONEX [Suspect]
     Indication: MULTIPLE SCLEROSIS
     Route: 030
     Dates: start: 20011010, end: 20030101
  2. AVONEX [Suspect]
     Route: 030
     Dates: start: 20030101, end: 20050301

REACTIONS (5)
  - CHOLECYSTITIS ACUTE [None]
  - DYSPNOEA [None]
  - LEUKOCYTOSIS [None]
  - PANCREATITIS [None]
  - RED BLOOD CELL COUNT INCREASED [None]
